FAERS Safety Report 4420549-5 (Version None)
Quarter: 2004Q3

REPORT INFORMATION
  Report Type: 
  Country: None (occurrence: None)
  Receive Date: 20040809
  Receipt Date: 20040329
  Transmission Date: 20050211
  Serious: No
  Sender: FDA-Public Use
  Company Number: US-GLAXOSMITHKLINE-A0504873A

PATIENT
  Age: 74 Year
  Sex: Male

DRUGS (7)
  1. PAXIL CR [Suspect]
     Dosage: 12.5MG PER DAY
     Route: 048
     Dates: start: 20040322, end: 20040323
  2. LANOXIN [Concomitant]
  3. LOPRESSOR [Concomitant]
  4. ELMIRON [Concomitant]
  5. XANAX [Concomitant]
  6. AVAPRO [Concomitant]
  7. VICODIN [Concomitant]

REACTIONS (5)
  - ANXIETY [None]
  - DEPRESSION [None]
  - HYPERTENSION [None]
  - NAUSEA [None]
  - TREMOR [None]
